FAERS Safety Report 5618340-7 (Version None)
Quarter: 2008Q1

REPORT INFORMATION
  Report Type: 
  Country: None (occurrence: None)
  Receive Date: 20080205
  Receipt Date: 20080205
  Transmission Date: 20080703
  Serious: No
  Sender: FDA-Public Use
  Company Number: None

PATIENT
  Age: 92 Year
  Sex: Female
  Weight: 61.2356 kg

DRUGS (1)
  1. FLUCONAZOLE [Suspect]
     Indication: FUNGAL INFECTION
     Dosage: ONE TABLET  ONCE A DAY  PO
     Route: 048
     Dates: start: 20080203, end: 20080203

REACTIONS (2)
  - CONVULSION [None]
  - DIZZINESS [None]
